FAERS Safety Report 7099600-2 (Version None)
Quarter: 2010Q4

REPORT INFORMATION
  Report Type: 
  Country: None (occurrence: None)
  Receive Date: 20101112
  Receipt Date: 20101103
  Transmission Date: 20110411
  Serious: Yes (Life-Threatening, Hospitalization)
  Sender: FDA-Public Use
  Company Number: US-GENZYME-MOZO-1000380

PATIENT
  Sex: Male
  Weight: 86.8 kg

DRUGS (11)
  1. MOZOBIL [Suspect]
     Indication: HAEMATOPOIETIC STEM CELL MOBILISATION
     Dosage: 1.2 ML, QD
     Dates: start: 20050531, end: 20050603
  2. PLACEBO [Suspect]
     Indication: HAEMATOPOIETIC STEM CELL MOBILISATION
     Dosage: 1.2 ML, QD
     Dates: start: 20050531, end: 20050603
  3. MOZOBIL [Suspect]
     Indication: NON-HODGKIN'S LYMPHOMA
  4. PLACEBO [Suspect]
     Indication: NON-HODGKIN'S LYMPHOMA
  5. NEUPOGEN [Concomitant]
     Indication: HAEMATOPOIETIC STEM CELL MOBILISATION
     Dosage: UNK
  6. CALCIUM [Concomitant]
  7. PREDNISONE [Concomitant]
  8. CRESTOR [Concomitant]
  9. LEVOTHYROXINE [Concomitant]
     Indication: HYPOTHYROIDISM
  10. MAGNESIUM OXIDE [Concomitant]
  11. NEUTRA-PHOS-K [Concomitant]

REACTIONS (1)
  - ACUTE MYELOID LEUKAEMIA [None]
